FAERS Safety Report 8840994 (Version 1)
Quarter: 2012Q4

REPORT INFORMATION
  Report Type: 
  Country: NL (occurrence: NL)
  Receive Date: 20121015
  Receipt Date: 20121015
  Transmission Date: 20130627
  Serious: Yes (Hospitalization)
  Sender: FDA-Public Use
  Company Number: NL-ELI_LILLY_AND_COMPANY-NL201210000969

PATIENT
  Sex: Female

DRUGS (1)
  1. ZYPADHERA [Suspect]

REACTIONS (1)
  - Incorrect route of drug administration [Unknown]
